FAERS Safety Report 6023206-7 (Version None)
Quarter: 2008Q4

REPORT INFORMATION
  Report Type: 
  Country: None (occurrence: None)
  Receive Date: 20081222
  Receipt Date: 20080927
  Transmission Date: 20090506
  Serious: No
  Sender: FDA-Public Use
  Company Number: ALL1-2008-02801

PATIENT
  Age: 4 Year
  Sex: Male
  Weight: 25.9 kg

DRUGS (1)
  1. VYVANSE [Suspect]
     Indication: ATTENTION DEFICIT/HYPERACTIVITY DISORDER
     Dosage: 20 MG, 1X/DAY:QD, ORAL
     Route: 048
     Dates: start: 20080926

REACTIONS (6)
  - ABDOMINAL DISCOMFORT [None]
  - ANOREXIA [None]
  - CHANGE IN SUSTAINED ATTENTION [None]
  - CRYING [None]
  - EMOTIONAL DISORDER [None]
  - OFF LABEL USE [None]
